FAERS Safety Report 21147536 (Version 2)
Quarter: 2022Q4

REPORT INFORMATION
  Report Type: Spontaneous
  Country: CA (occurrence: CA)
  Receive Date: 20220729
  Receipt Date: 20221121
  Transmission Date: 20230113
  Serious: Yes (Hospitalization, Other)
  Sender: FDA-Public Use
  Company Number: CA-GSK-CA2022AMR110569

PATIENT

DRUGS (4)
  1. BENLYSTA [Suspect]
     Active Substance: BELIMUMAB
     Indication: Systemic lupus erythematosus
     Dosage: 10 MG/KG, Z(EVERY 4 WEEKS)
  2. BENLYSTA [Suspect]
     Active Substance: BELIMUMAB
     Dosage: 10 MG/KG, Z (EVERY 4 WEEKS)
  3. BENLYSTA [Suspect]
     Active Substance: BELIMUMAB
     Dosage: 870 MG, Z (EVERY 4 WEEKS)
  4. BENLYSTA [Suspect]
     Active Substance: BELIMUMAB
     Dosage: 870 MG, Z (EVERY 4 WEEKS)

REACTIONS (4)
  - Nausea [Unknown]
  - Vomiting [Unknown]
  - Cough [Unknown]
  - Systemic lupus erythematosus [Unknown]

NARRATIVE: CASE EVENT DATE: 20221112
